FAERS Safety Report 21674381 (Version 1)
Quarter: 2022Q4

REPORT INFORMATION
  Report Type: Spontaneous
  Country: US (occurrence: US)
  Receive Date: 20221202
  Receipt Date: 20221202
  Transmission Date: 20230112
  Serious: No
  Sender: FDA-Public Use
  Company Number: US-BEH-2022152535

PATIENT
  Sex: Female

DRUGS (46)
  1. HIZENTRA [Suspect]
     Active Substance: HUMAN IMMUNOGLOBULIN G
     Indication: Immunodeficiency common variable
     Dosage: 14 GRAM, QW
     Route: 058
     Dates: start: 20200221
  2. ALBUTEROL SULFATE [Concomitant]
     Active Substance: ALBUTEROL SULFATE
  3. ALBUTEROL [Concomitant]
     Active Substance: ALBUTEROL
  4. ALBUTEROL [Concomitant]
     Active Substance: ALBUTEROL
  5. ALENDRONATE [Concomitant]
     Active Substance: ALENDRONATE SODIUM
  6. ATORVASTATIN CALCIUM [Concomitant]
     Active Substance: ATORVASTATIN CALCIUM
  7. CIMETIDINE [Concomitant]
     Active Substance: CIMETIDINE
  8. CYCLOBENZAPRINE [Concomitant]
     Active Substance: CYCLOBENZAPRINE
  9. DICLOFENAC [Concomitant]
     Active Substance: DICLOFENAC
  10. DOCUSATE SOD [Concomitant]
  11. DOXAZOSIN [Concomitant]
     Active Substance: DOXAZOSIN MESYLATE
  12. DULOXETINE [Concomitant]
     Active Substance: DULOXETINE
  13. EPINEPHRINE [Concomitant]
     Active Substance: EPINEPHRINE
  14. FLUTICASONE [Concomitant]
     Active Substance: FLUTICASONE
  15. GABAPENTIN [Concomitant]
     Active Substance: GABAPENTIN
  16. GABAPENTIN [Concomitant]
     Active Substance: GABAPENTIN
  17. HYDROCODONE BITARTRATE AND ACETAMINOPHEN [Concomitant]
     Active Substance: ACETAMINOPHEN\HYDROCODONE BITARTRATE
  18. HYDROCORTISONE SODIUM SUCCINATE [Concomitant]
     Active Substance: HYDROCORTISONE SODIUM SUCCINATE
  19. HYDROXYZINE HYDROCHLORIDE [Concomitant]
     Active Substance: HYDROXYZINE HYDROCHLORIDE
  20. IBUPROFEN [Concomitant]
     Active Substance: IBUPROFEN
  21. KEPPRA [Concomitant]
     Active Substance: LEVETIRACETAM
  22. KLOR-CON M10 [Concomitant]
     Active Substance: POTASSIUM CHLORIDE
  23. LASIX [Concomitant]
     Active Substance: FUROSEMIDE
  24. LATUDA [Concomitant]
     Active Substance: LURASIDONE HYDROCHLORIDE
  25. LEVETIRACETAM [Concomitant]
     Active Substance: LEVETIRACETAM
  26. LORATADINE [Concomitant]
     Active Substance: LORATADINE
  27. MEDROXYPROGESTERONE ACETATE [Concomitant]
     Active Substance: MEDROXYPROGESTERONE ACETATE
  28. METHOCARBAMOL [Concomitant]
     Active Substance: METHOCARBAMOL
  29. MUCINEX [Concomitant]
     Active Substance: GUAIFENESIN
  30. MINERALS\VITAMINS [Concomitant]
     Active Substance: MINERALS\VITAMINS
  31. NAPROXEN [Concomitant]
     Active Substance: NAPROXEN
  32. OMEPRAZOLE [Concomitant]
     Active Substance: OMEPRAZOLE
  33. OYSTER SHELL [Concomitant]
     Active Substance: OSTREA EDULIS SHELL
  34. POLYETHYLENE GLYCOL 3350 [Concomitant]
     Active Substance: POLYETHYLENE GLYCOL 3350
  35. POTASSIUM CHLORIDE [Concomitant]
     Active Substance: POTASSIUM CHLORIDE
  36. PRAZOSIN HYDROCHLORIDE [Concomitant]
     Active Substance: PRAZOSIN HYDROCHLORIDE
  37. PREDNISONE [Concomitant]
     Active Substance: PREDNISONE
  38. PROMETHAZINE [Concomitant]
     Active Substance: PROMETHAZINE HYDROCHLORIDE
  39. PROMETHAZINE [Concomitant]
     Active Substance: PROMETHAZINE HYDROCHLORIDE
  40. QVAR REDIHALER [Concomitant]
     Active Substance: BECLOMETHASONE DIPROPIONATE
  41. RANITIDINE [Concomitant]
     Active Substance: RANITIDINE
  42. SUMATRIPTAN [Concomitant]
     Active Substance: SUMATRIPTAN
  43. SUPREP BOWEL PREP [Concomitant]
     Active Substance: MAGNESIUM SULFATE\POTASSIUM SULFATE\SODIUM SULFATE
  44. TRAZODONE [Concomitant]
     Active Substance: TRAZODONE HYDROCHLORIDE
  45. VITAMIN D NOS [Concomitant]
     Active Substance: VITAMIN D NOS
  46. ZOFRAN [Concomitant]
     Active Substance: ONDANSETRON HYDROCHLORIDE

REACTIONS (5)
  - Malaise [Not Recovered/Not Resolved]
  - Platelet count decreased [Not Recovered/Not Resolved]
  - Eye contusion [Not Recovered/Not Resolved]
  - No adverse event [Not Recovered/Not Resolved]
  - Product distribution issue [Not Recovered/Not Resolved]
